FAERS Safety Report 16520930 (Version 1)
Quarter: 2019Q3

REPORT INFORMATION
  Report Type: Report from Study
  Country: US (occurrence: US)
  Receive Date: 20190703
  Receipt Date: 20190703
  Transmission Date: 20191004
  Serious: Yes (Other)
  Sender: FDA-Public Use
  Company Number: US-UCBSA-2019028378

PATIENT
  Age: 8 Year
  Sex: Female

DRUGS (2)
  1. LEVETIRACETAM. [Suspect]
     Active Substance: LEVETIRACETAM
     Dosage: 500 MILLIGRAM, 2X/DAY (BID)
  2. LEVETIRACETAM. [Suspect]
     Active Substance: LEVETIRACETAM
     Indication: EPILEPSY
     Dosage: 225 MILLIGRAM, 2X/DAY (BID)

REACTIONS (4)
  - Generalised tonic-clonic seizure [Unknown]
  - Emotional disorder [Unknown]
  - Lethargy [Unknown]
  - Petit mal epilepsy [Unknown]
